FAERS Safety Report 24184268 (Version 3)
Quarter: 2024Q3

REPORT INFORMATION
  Report Type: Report from Study
  Country: US (occurrence: US)
  Receive Date: 20240807
  Receipt Date: 20240905
  Transmission Date: 20241017
  Serious: No
  Sender: JOHNSON AND JOHNSON
  Company Number: US-JNJFOC-20240750514

PATIENT
  Age: 67 Year

DRUGS (4)
  1. STELARA [Suspect]
     Active Substance: USTEKINUMAB
     Indication: Crohn^s disease
     Route: 058
     Dates: start: 20240521, end: 20240521
  2. STELARA [Suspect]
     Active Substance: USTEKINUMAB
     Route: 058
     Dates: start: 20240719, end: 20240719
  3. STELARA [Suspect]
     Active Substance: USTEKINUMAB
     Route: 058
  4. IMURAN [Concomitant]
     Active Substance: AZATHIOPRINE
     Indication: Product used for unknown indication

REACTIONS (6)
  - Anxiety [Unknown]
  - Rash [Not Recovered/Not Resolved]
  - Eye discharge [Unknown]
  - Device deployment issue [Unknown]
  - Accidental exposure to product [Unknown]
  - Syringe issue [Unknown]

NARRATIVE: CASE EVENT DATE: 20240101
